FAERS Safety Report 5313125-3 (Version None)
Quarter: 2007Q2

REPORT INFORMATION
  Report Type: 
  Country: None (occurrence: None)
  Receive Date: 20070430
  Receipt Date: 20070419
  Transmission Date: 20071010
  Serious: Yes (Hospitalization)
  Sender: FDA-Public Use
  Company Number: FR-PFIZER INC-2007032567

PATIENT
  Age: 35 Year
  Sex: Female
  Weight: 65 kg

DRUGS (7)
  1. EPIRUBICIN HYDROCHLORIDE [Suspect]
     Indication: BREAST CANCER
     Dates: start: 20060915, end: 20061006
  2. DOCETAXEL [Suspect]
     Indication: BREAST CANCER
     Dates: start: 20060915, end: 20061006
  3. PREDNISOLONE [Suspect]
     Dates: start: 20060915, end: 20061006
  4. METOCLOPRAMIDE [Suspect]
     Dosage: TEXT:1 TABLET
     Dates: start: 20060915, end: 20061006
  5. IBUPROFEN [Suspect]
     Dates: start: 20061014, end: 20061016
  6. ONDASETRON [Suspect]
     Route: 067
     Dates: start: 20060915, end: 20061006
  7. PEGFILGRASTIM [Concomitant]

REACTIONS (1)
  - HEPATITIS [None]
